FAERS Safety Report 7654449-4 (Version None)
Quarter: 2011Q3

REPORT INFORMATION
  Report Type: 
  Country: None (occurrence: None)
  Receive Date: 20110803
  Receipt Date: 20110722
  Transmission Date: 20111222
  Serious: Yes (Congenital Anomaly)
  Sender: FDA-Public Use
  Company Number: FR-GILEAD-2011-0042387

PATIENT
  Sex: Female

DRUGS (4)
  1. ABACAVIR SULFATE AND LAMIVUDINE [Concomitant]
     Route: 064
  2. INVIRASE [Concomitant]
     Route: 064
     Dates: start: 20080816
  3. TRUVADA [Suspect]
     Indication: HIV INFECTION
     Route: 064
     Dates: start: 20080816
  4. KALETRA [Concomitant]
     Route: 064

REACTIONS (1)
  - ENLARGED CLITORIS [None]
